FAERS Safety Report 20756420 (Version 1)
Quarter: 2022Q2

REPORT INFORMATION
  Report Type: Spontaneous
  Country: US (occurrence: None)
  Receive Date: 20220427
  Receipt Date: 20220427
  Transmission Date: 20220720
  Serious: No
  Sender: FDA-Public Use
  Company Number: None

PATIENT
  Age: 44 Year
  Sex: Female
  Weight: 66.6 kg

DRUGS (1)
  1. ORILISSA [Suspect]
     Active Substance: ELAGOLIX SODIUM
     Indication: Endometriosis

REACTIONS (15)
  - Weight increased [None]
  - Peripheral swelling [None]
  - Arthralgia [None]
  - Trigger finger [None]
  - Muscle disorder [None]
  - Fatigue [None]
  - Fatigue [None]
  - Depressed level of consciousness [None]
  - Breast swelling [None]
  - Breast cyst [None]
  - Breast pain [None]
  - Blood cholesterol abnormal [None]
  - Anaemia [None]
  - Migraine [None]
  - Hormone level abnormal [None]
